FAERS Safety Report 21179415 (Version 15)
Quarter: 2023Q4

REPORT INFORMATION
  Report Type: Report from Study
  Country: GB (occurrence: GB)
  Receive Date: 20220805
  Receipt Date: 20231220
  Transmission Date: 20240109
  Serious: Yes (Hospitalization)
  Sender: FDA-Public Use
  Company Number: GB-ROCHE-3124273

PATIENT
  Age: 55 Year
  Sex: Male
  Weight: 89.6 kg

DRUGS (6)
  1. CARBOPLATIN [Suspect]
     Active Substance: CARBOPLATIN
     Indication: Small cell lung cancer metastatic
     Dosage: 700 MG
     Route: 065
     Dates: start: 20220518
  2. ATEZOLIZUMAB [Suspect]
     Active Substance: ATEZOLIZUMAB
     Indication: Small cell lung cancer metastatic
     Dosage: LAST DOSE OF ATEZOLIZUMAB ADMINISTERED PRIOR TO AE AND SAE IS 1200 MG
     Route: 041
     Dates: start: 20220518
  3. ETOPOSIDE [Suspect]
     Active Substance: ETOPOSIDE
     Indication: Small cell lung cancer metastatic
     Dosage: 220 MG
     Route: 042
     Dates: start: 20220518
  4. ETOPOSIDE [Suspect]
     Active Substance: ETOPOSIDE
     Dosage: 400 MG
     Route: 048
     Dates: start: 20220519
  5. TINZAPARIN [Concomitant]
     Active Substance: TINZAPARIN
     Dosage: UNK, 1X/DAY
     Route: 065
     Dates: start: 20220523, end: 20220529
  6. LANSOPRAZOLE [Concomitant]
     Active Substance: LANSOPRAZOLE
     Dosage: UNK, 1X/DAY
     Route: 065
     Dates: start: 20220523, end: 20220529

REACTIONS (13)
  - Neutropenic sepsis [Recovered/Resolved]
  - Lymphocyte count decreased [Not Recovered/Not Resolved]
  - Pancytopenia [Recovered/Resolved]
  - Blood bilirubin increased [Recovered/Resolved]
  - Blood alkaline phosphatase increased [Not Recovered/Not Resolved]
  - Alanine aminotransferase increased [Recovered/Resolved]
  - White blood cell count decreased [Recovered/Resolved]
  - Neutrophil count decreased [Recovered/Resolved]
  - Platelet count decreased [Recovered/Resolved]
  - Haemoglobin decreased [Not Recovered/Not Resolved]
  - Herpes zoster [Unknown]
  - Oral candidiasis [Recovered/Resolved]
  - C-reactive protein increased [Unknown]

NARRATIVE: CASE EVENT DATE: 20220523
